FAERS Safety Report 19871650 (Version 1)
Quarter: 2021Q3

REPORT INFORMATION
  Report Type: Spontaneous
  Country: US (occurrence: US)
  Receive Date: 20210922
  Receipt Date: 20210922
  Transmission Date: 20211014
  Serious: Yes (Death, Other)
  Sender: FDA-Public Use
  Company Number: US-PERRIGO-21US026966

PATIENT
  Age: 73 Year
  Sex: Female

DRUGS (4)
  1. RANITIDINE HYDROCHLORIDE (156) [Suspect]
     Active Substance: RANITIDINE HYDROCHLORIDE
     Indication: DYSPEPSIA
  2. RANITIDINE HYDROCHLORIDE (156) [Suspect]
     Active Substance: RANITIDINE HYDROCHLORIDE
     Indication: ABDOMINAL DISCOMFORT
  3. RANITIDINE HYDROCHLORIDE (156) [Suspect]
     Active Substance: RANITIDINE HYDROCHLORIDE
     Indication: DYSPEPSIA
     Dosage: DOSE FREQUENCY: DAILY
     Route: 048
     Dates: start: 200409, end: 201803
  4. RANITIDINE HYDROCHLORIDE (156) [Suspect]
     Active Substance: RANITIDINE HYDROCHLORIDE
     Indication: HYPERCHLORHYDRIA

REACTIONS (2)
  - Leukaemia [Fatal]
  - Malignant splenic neoplasm [Fatal]

NARRATIVE: CASE EVENT DATE: 20100101
